FAERS Safety Report 16758970 (Version 1)
Quarter: 2019Q3

REPORT INFORMATION
  Report Type: Spontaneous
  Country: GB (occurrence: GB)
  Receive Date: 20190830
  Receipt Date: 20190830
  Transmission Date: 20191005
  Serious: Yes (Other)
  Sender: FDA-Public Use
  Company Number: GB-SHILPA MEDICARE LIMITED-SML-GB-2019-00187

PATIENT
  Age: 48 Year
  Sex: Male

DRUGS (2)
  1. IMATINIB, UNKNOWN [Suspect]
     Active Substance: IMATINIB
     Indication: CHORDOMA
     Dosage: UNK
     Route: 065
  2. IMATINIB, UNKNOWN [Suspect]
     Active Substance: IMATINIB
     Indication: CHORDOMA
     Dosage: UNK
     Route: 065

REACTIONS (5)
  - Chordoma [Unknown]
  - Metastases to lung [Unknown]
  - Recurrent cancer [Unknown]
  - Metastases to spine [Unknown]
  - Product use in unapproved indication [Unknown]
